FAERS Safety Report 24164184 (Version 1)
Quarter: 2024Q3

REPORT INFORMATION
  Report Type: Spontaneous
  Country: CN (occurrence: None)
  Receive Date: 20240801
  Receipt Date: 20240801
  Transmission Date: 20241017
  Serious: Yes (Other)
  Sender: ASTRAZENECA
  Company Number: 2024A171238

PATIENT
  Age: 28333 Day
  Sex: Male
  Weight: 64 kg

DRUGS (2)
  1. OLAPARIB [Suspect]
     Active Substance: OLAPARIB
     Indication: Neoplasm malignant
     Route: 048
     Dates: start: 20240623, end: 20240711
  2. VORICONAZOLE [Suspect]
     Active Substance: VORICONAZOLE
     Indication: Pneumonia
     Route: 048
     Dates: start: 20240615, end: 20240710

REACTIONS (1)
  - Myelosuppression [Recovering/Resolving]

NARRATIVE: CASE EVENT DATE: 20240710
